FAERS Safety Report 13032219 (Version 1)
Quarter: 2016Q4

REPORT INFORMATION
  Report Type: Spontaneous
  Country: US (occurrence: US)
  Receive Date: 20161215
  Receipt Date: 20161215
  Transmission Date: 20170207
  Serious: Yes (Other)
  Sender: FDA-Public Use
  Company Number: US-BAYER-2016-234565

PATIENT

DRUGS (1)
  1. AVELOX [Suspect]
     Active Substance: MOXIFLOXACIN HYDROCHLORIDE
     Dosage: UNK

REACTIONS (9)
  - Asthenia [None]
  - Musculoskeletal injury [None]
  - Paraesthesia [None]
  - Neuropathy peripheral [None]
  - Hypoaesthesia [None]
  - Skin injury [None]
  - Pain [None]
  - Burning sensation [None]
  - Injury [None]
